FAERS Safety Report 22214615 (Version 1)
Quarter: 2023Q2

REPORT INFORMATION
  Report Type: Spontaneous
  Country: NL (occurrence: NL)
  Receive Date: 20230415
  Receipt Date: 20230415
  Transmission Date: 20230722
  Serious: Yes (Other)
  Sender: FDA-Public Use
  Company Number: NL-LRB-00872209

PATIENT
  Sex: Male
  Weight: 68 kg

DRUGS (1)
  1. ESOMEPRAZOLE [Suspect]
     Active Substance: ESOMEPRAZOLE
     Indication: Regurgitation
     Dosage: 40 MILLIGRAM, ONCE A DAY
     Route: 065
     Dates: start: 20221215, end: 20230215

REACTIONS (2)
  - Erectile dysfunction [Not Recovered/Not Resolved]
  - Orgasmic sensation decreased [Not Recovered/Not Resolved]
